FAERS Safety Report 7453924-5 (Version None)
Quarter: 2011Q2

REPORT INFORMATION
  Report Type: 
  Country: None (occurrence: None)
  Receive Date: 20110502
  Receipt Date: 20110420
  Transmission Date: 20111010
  Serious: Yes (Life-Threatening)
  Sender: FDA-Public Use
  Company Number: US-BAYER-2011-034789

PATIENT
  Age: 49 Year
  Sex: Female

DRUGS (2)
  1. ANTIHYPERTENSIVES [Concomitant]
     Indication: HYPERTENSION
  2. AVELOX [Suspect]
     Indication: UPPER RESPIRATORY TRACT INFECTION
     Dosage: 400 MG, QD
     Route: 048
     Dates: start: 20110411, end: 20110411

REACTIONS (5)
  - RASH [None]
  - HYPERSENSITIVITY [None]
  - LIP SWELLING [None]
  - EYE SWELLING [None]
  - NASAL OEDEMA [None]
